FAERS Safety Report 9647230 (Version 1)
Quarter: 2013Q4

REPORT INFORMATION
  Report Type: Spontaneous
  Country: US (occurrence: None)
  Receive Date: 20131024
  Receipt Date: 20131024
  Transmission Date: 20140711
  Serious: Yes (Disabling)
  Sender: FDA-Public Use
  Company Number: None

PATIENT
  Age: 29 Year
  Sex: Female
  Weight: 56.7 kg

DRUGS (2)
  1. EFFEXOR [Suspect]
     Indication: DEPRESSION
     Dosage: 1 PILL  TWICE DAILY  TAKEN BY MOUTH
     Route: 048
  2. EFFEXOR [Suspect]
     Indication: ANXIETY
     Dosage: 1 PILL  TWICE DAILY  TAKEN BY MOUTH
     Route: 048

REACTIONS (11)
  - Drug dose omission [None]
  - Drug withdrawal syndrome [None]
  - Nausea [None]
  - Diarrhoea [None]
  - Abdominal pain [None]
  - Dizziness [None]
  - Dizziness [None]
  - Depression [None]
  - Feeling of despair [None]
  - Crying [None]
  - Fatigue [None]
